FAERS Safety Report 6560936-2 (Version None)
Quarter: 2010Q1

REPORT INFORMATION
  Report Type: 
  Country: None (occurrence: None)
  Receive Date: 20100129
  Receipt Date: 20091002
  Transmission Date: 20100710
  Serious: Yes (Hospitalization)
  Sender: FDA-Public Use
  Company Number: US-ABBOTT-09P-163-0600474-00

PATIENT
  Sex: Male

DRUGS (1)
  1. HUMIRA [Suspect]
     Indication: PSORIASIS
     Dosage: 2 PENS DAY 1, 1 PEN DAY 8, 1 PEN TWO WEEKS LATER
     Route: 058
     Dates: start: 20090826, end: 20090916

REACTIONS (7)
  - ACNE [None]
  - AXILLARY MASS [None]
  - LYMPHADENOPATHY [None]
  - MALAISE [None]
  - PAIN [None]
  - PYREXIA [None]
  - STREPTOCOCCAL INFECTION [None]
